FAERS Safety Report 8599695-0 (Version None)
Quarter: 2012Q3

REPORT INFORMATION
  Report Type: 
  Country: None (occurrence: None)
  Receive Date: 20120816
  Receipt Date: 20120809
  Transmission Date: 20120928
  Serious: Yes (Other)
  Sender: FDA-Public Use
  Company Number: US-PURDUE-USA-2012-0081948

PATIENT
  Sex: Male
  Weight: 63.95 kg

DRUGS (8)
  1. VALIUM [Concomitant]
     Route: 048
  2. OXYCONTIN [Suspect]
     Dosage: 80 MG, Q12H
     Route: 048
  3. SYNTHROID [Concomitant]
     Indication: PRODUCT USED FOR UNKNOWN INDICATION
     Dosage: 50 MCG, DAILY
     Route: 048
  4. ZOLOFT [Concomitant]
     Indication: PRODUCT USED FOR UNKNOWN INDICATION
     Dosage: 200 MG, DAILY
     Route: 048
  5. UNISOM                             /00000402/ [Concomitant]
     Indication: SLEEP DISORDER
  6. OXYCONTIN [Suspect]
     Indication: PAIN
     Dosage: 480 MG, Q12H
  7. VALIUM [Concomitant]
     Indication: ANXIETY
     Dosage: 10 MG, Q12H PRN
     Route: 048
  8. NEURONTIN [Concomitant]
     Indication: PAIN
     Dosage: 1200 MG, TID
     Route: 048

REACTIONS (20)
  - POST LAMINECTOMY SYNDROME [None]
  - DRUG WITHDRAWAL SYNDROME [None]
  - INSOMNIA [None]
  - INCOHERENT [None]
  - URINARY INCONTINENCE [None]
  - ANAEMIA [None]
  - OSTEOCHONDROSIS [None]
  - ACTIVITIES OF DAILY LIVING IMPAIRED [None]
  - SUICIDAL IDEATION [None]
  - EATING DISORDER [None]
  - NEGATIVE THOUGHTS [None]
  - PAROSMIA [None]
  - MOBILITY DECREASED [None]
  - PAIN [None]
  - HYPOTHYROIDISM [None]
  - ANXIETY [None]
  - ABNORMAL LOSS OF WEIGHT [None]
  - SUBCUTANEOUS ABSCESS [None]
  - MENTAL STATUS CHANGES [None]
  - DYSGEUSIA [None]
